FAERS Safety Report 5563808-5 (Version None)
Quarter: 2007Q4

REPORT INFORMATION
  Report Type: 
  Country: None (occurrence: None)
  Receive Date: 20071217
  Receipt Date: 20070911
  Transmission Date: 20080405
  Serious: No
  Sender: FDA-Public Use
  Company Number: US-ASTRAZENECA-2007UW21353

PATIENT
  Age: 58 Year
  Sex: Female

DRUGS (10)
  1. CRESTOR [Suspect]
  2. ALBUTEROL AEROSOL FOR INHALATION [Concomitant]
     Route: 055
  3. CATEPRES 0.1MG [Concomitant]
  4. CLONAZEPAM [Concomitant]
  5. CYMBALTA [Concomitant]
  6. DURAGESIC 100 MCG/HR [Concomitant]
     Dosage: 100 MCG/HR
  7. GABITRIL [Concomitant]
  8. OXYCONTIN [Concomitant]
  9. VIT B12 [Concomitant]
  10. CYANO. INJEC [Concomitant]

REACTIONS (1)
  - WEIGHT DECREASED [None]
